FAERS Safety Report 7636989-7 (Version None)
Quarter: 2011Q3

REPORT INFORMATION
  Report Type: 
  Country: None (occurrence: None)
  Receive Date: 20110726
  Receipt Date: 20110614
  Transmission Date: 20111222
  Serious: No
  Sender: FDA-Public Use
  Company Number: US-BAYER-2011-051452

PATIENT
  Age: 43 Year
  Sex: Female

DRUGS (1)
  1. GADOBUTROL [Suspect]
     Indication: NUCLEAR MAGNETIC RESONANCE IMAGING
     Dosage: 8 ML, ONCE
     Dates: start: 20110613

REACTIONS (1)
  - PRURITUS GENERALISED [None]
